FAERS Safety Report 9034106 (Version 1)
Quarter: 2013Q1

REPORT INFORMATION
  Report Type: Spontaneous
  Country: US (occurrence: None)
  Receive Date: 20130116
  Receipt Date: 20130116
  Transmission Date: 20140127
  Serious: Yes (Other)
  Sender: FDA-Public Use
  Company Number: None

PATIENT
  Age: 59 Year
  Sex: Male
  Weight: 72.58 kg

DRUGS (1)
  1. LOSARTAN/HYDROCHLOROTHIAZIDE [Suspect]
     Indication: HYPERTENSION
     Dosage: 1 TABLET
     Route: 048
     Dates: start: 20130108, end: 20130108

REACTIONS (6)
  - Drug dispensing error [None]
  - Wrong technique in drug usage process [None]
  - Movement disorder [None]
  - Loss of consciousness [None]
  - Haemorrhage [None]
  - Laceration [None]
